FAERS Safety Report 13057299 (Version 1)
Quarter: 2016Q4

REPORT INFORMATION
  Report Type: Spontaneous
  Country: US (occurrence: US)
  Receive Date: 20161223
  Receipt Date: 20161223
  Transmission Date: 20170207
  Serious: No
  Sender: FDA-Public Use
  Company Number: US-ACORDA-ACO_120942_2016

PATIENT
  Age: 57 Year
  Sex: Female
  Weight: 58.5 kg

DRUGS (7)
  1. ZANAFLEX [Suspect]
     Active Substance: TIZANIDINE HYDROCHLORIDE
     Indication: MUSCULOSKELETAL PAIN
  2. GABAPENTIN. [Suspect]
     Active Substance: GABAPENTIN
     Indication: PAIN
     Dosage: UNK
     Route: 048
  3. TIZANIDINE. [Suspect]
     Active Substance: TIZANIDINE
     Indication: PAIN
     Dosage: 4 MG, BID
     Route: 048
     Dates: start: 20160110
  4. MOTRIN [Suspect]
     Active Substance: IBUPROFEN
     Indication: PAIN
     Dosage: 800 MG, UNK
     Route: 048
  5. OXYCODONE [Suspect]
     Active Substance: OXYCODONE
     Indication: PAIN
     Dosage: UNK
     Route: 048
  6. ZANAFLEX [Suspect]
     Active Substance: TIZANIDINE HYDROCHLORIDE
     Indication: NECK PAIN
     Dosage: 4 MG, QD
     Route: 048
     Dates: start: 201512, end: 201512
  7. NEURONTIN [Suspect]
     Active Substance: GABAPENTIN
     Indication: PAIN
     Route: 048

REACTIONS (4)
  - Spinal pain [Unknown]
  - Medication error [Recovered/Resolved]
  - Adverse event [Unknown]
  - Drug ineffective [Not Recovered/Not Resolved]

NARRATIVE: CASE EVENT DATE: 201512
